FAERS Safety Report 6763753-3 (Version None)
Quarter: 2010Q2

REPORT INFORMATION
  Report Type: 
  Country: None (occurrence: None)
  Receive Date: 20100610
  Receipt Date: 20100602
  Transmission Date: 20101027
  Serious: Yes (Death, Hospitalization)
  Sender: FDA-Public Use
  Company Number: PT-ROCHE-632258

PATIENT
  Sex: Female
  Weight: 56 kg

DRUGS (10)
  1. HERCEPTIN [Suspect]
     Indication: BREAST CANCER
     Dosage: HERCEPTIN POWDER FOR CONCENTRATE FOR SOLUTION FOR INFUSION - 150 MG
     Route: 042
     Dates: start: 20081008, end: 20090309
  2. DIAZEPAM [Suspect]
     Route: 065
  3. TIANEPTINE [Suspect]
     Route: 065
  4. ESTAZOLAM [Suspect]
     Route: 065
  5. DOXORUBICIN HCL [Suspect]
     Indication: BREAST CANCER
     Dosage: FREQUENCY: CYCLE OF 21/ 21 DAYS.
     Route: 042
     Dates: start: 20080401, end: 20080701
  6. TAMOXIFEN CITRATE [Concomitant]
     Indication: BREAST CANCER
     Route: 048
     Dates: start: 20080918, end: 20090323
  7. PERINDOPRIL ARGININE [Concomitant]
     Route: 048
     Dates: start: 20090316, end: 20090323
  8. DOCETAXEL [Concomitant]
     Indication: BREAST CANCER
     Dosage: FREQUENCY: CYCLE OF 21/ 21 DAYS.
     Route: 042
     Dates: start: 20080401, end: 20080701
  9. CYCLOPHOSPHAMIDE [Concomitant]
     Indication: BREAST CANCER
     Dosage: DOSE: 500 M/M2, FREQUENCY: CYCLE OF 21/ 21 DAYS,
     Route: 042
     Dates: start: 20080401, end: 20080701
  10. ATENOLOL [Concomitant]
     Indication: SUPRAVENTRICULAR EXTRASYSTOLES

REACTIONS (5)
  - ARRHYTHMIA [None]
  - DEPRESSION [None]
  - EJECTION FRACTION DECREASED [None]
  - LEFT ATRIAL DILATATION [None]
  - SUDDEN DEATH [None]
